FAERS Safety Report 24413258 (Version 3)
Quarter: 2025Q2

REPORT INFORMATION
  Report Type: Spontaneous
  Country: US (occurrence: US)
  Receive Date: 20241008
  Receipt Date: 20250530
  Transmission Date: 20250717
  Serious: No
  Sender: NOVARTIS
  Company Number: US-002147023-NVSC2024US196620

PATIENT
  Sex: Male

DRUGS (3)
  1. MEKINIST [Suspect]
     Active Substance: TRAMETINIB DIMETHYL SULFOXIDE
     Indication: Craniopharyngioma
     Dosage: 2 MG, QD
     Route: 048
     Dates: start: 202408
  2. TAFINLAR [Suspect]
     Active Substance: DABRAFENIB MESYLATE
     Indication: Craniopharyngioma
     Dosage: 150 MG, BID
     Route: 048
     Dates: start: 202408
  3. TAFINLAR [Suspect]
     Active Substance: DABRAFENIB MESYLATE
     Dosage: 150 MG, Q12H, (EVERY 12 HOURS)
     Route: 048
     Dates: start: 202408

REACTIONS (3)
  - Neoplasm [Unknown]
  - Rash [Unknown]
  - Product use in unapproved indication [Unknown]
